FAERS Safety Report 16885853 (Version 3)
Quarter: 2019Q4

REPORT INFORMATION
  Report Type: Spontaneous
  Country: US (occurrence: US)
  Receive Date: 20191004
  Receipt Date: 20191218
  Transmission Date: 20200122
  Serious: No
  Sender: FDA-Public Use
  Company Number: US-ASTRAZENECA-2019SF28684

PATIENT
  Sex: Female

DRUGS (7)
  1. SYMBICORT [Suspect]
     Active Substance: BUDESONIDE\FORMOTEROL FUMARATE DIHYDRATE
     Indication: COUGH
     Dosage: 80/4.5 MCG, TWO INHALATIONS TWICE A DAY
     Route: 055
     Dates: start: 201908
  2. SYMBICORT [Suspect]
     Active Substance: BUDESONIDE\FORMOTEROL FUMARATE DIHYDRATE
     Indication: WHEEZING
     Dosage: 80/4.5 MCG, TWO INHALATIONS TWICE A DAY
     Route: 055
     Dates: start: 201908
  3. SPIRIVA [Concomitant]
     Active Substance: TIOTROPIUM BROMIDE MONOHYDRATE
  4. ALBUTEROL. [Concomitant]
     Active Substance: ALBUTEROL
     Dosage: UNKNOWN DOSE FOUR TIMES A DAY
  5. OXYGEN. [Concomitant]
     Active Substance: OXYGEN
  6. SYMBICORT [Suspect]
     Active Substance: BUDESONIDE\FORMOTEROL FUMARATE DIHYDRATE
     Indication: CHRONIC OBSTRUCTIVE PULMONARY DISEASE
     Dosage: 80/4.5 MCG, TWO INHALATIONS TWICE A DAY
     Route: 055
     Dates: start: 201908
  7. SYMBICORT [Suspect]
     Active Substance: BUDESONIDE\FORMOTEROL FUMARATE DIHYDRATE
     Indication: BRONCHITIS CHRONIC
     Dosage: 80/4.5 MCG, TWO INHALATIONS TWICE A DAY
     Route: 055
     Dates: start: 201908

REACTIONS (10)
  - Gait inability [Unknown]
  - Product dose omission [Unknown]
  - Intentional device misuse [Unknown]
  - Drug delivery system malfunction [Unknown]
  - Wrong technique in device usage process [Not Recovered/Not Resolved]
  - Wheezing [Not Recovered/Not Resolved]
  - Cough [Not Recovered/Not Resolved]
  - Oropharyngeal pain [Unknown]
  - Loss of personal independence in daily activities [Unknown]
  - Device failure [Unknown]

NARRATIVE: CASE EVENT DATE: 201908
